FAERS Safety Report 8289164-X (Version None)
Quarter: 2012Q2

REPORT INFORMATION
  Report Type: 
  Country: None (occurrence: None)
  Receive Date: 20120417
  Receipt Date: 20120409
  Transmission Date: 20120825
  Serious: Yes (Other)
  Sender: FDA-Public Use
  Company Number: US-JNJFOC-20100703864

PATIENT
  Sex: Male

DRUGS (16)
  1. LEVAQUIN [Suspect]
     Route: 048
  2. LEVAQUIN [Suspect]
     Route: 048
  3. ADVAIR DISKUS 100/50 [Suspect]
     Indication: ACUTE SINUSITIS
     Route: 055
  4. PREDNISONE TAB [Suspect]
     Indication: ASTHMA
     Route: 048
  5. LEVAQUIN [Suspect]
     Indication: BRONCHITIS
     Route: 048
     Dates: start: 20070101
  6. LEVAQUIN [Suspect]
     Indication: SINUSITIS
     Route: 048
  7. LEVAQUIN [Suspect]
     Route: 048
  8. PREDNISONE TAB [Suspect]
     Indication: UPPER RESPIRATORY TRACT INFECTION
     Route: 048
  9. LEVAQUIN [Suspect]
     Route: 048
     Dates: start: 20070101
  10. LEVAQUIN [Suspect]
     Indication: POST PROCEDURAL INFECTION
     Route: 048
     Dates: start: 20070101
  11. LEVAQUIN [Suspect]
     Indication: PHARYNGITIS
     Route: 048
  12. LEVAQUIN [Suspect]
     Route: 048
     Dates: start: 20070101
  13. STEROIDS NOS [Suspect]
     Indication: GOUT
     Route: 065
  14. ADVAIR DISKUS 100/50 [Suspect]
     Indication: ASTHMA
     Route: 055
  15. CIPROFLOXACIN [Suspect]
     Indication: PRODUCT USED FOR UNKNOWN INDICATION
     Route: 065
  16. LEVAQUIN [Suspect]
     Indication: UPPER RESPIRATORY TRACT INFECTION
     Route: 048
     Dates: start: 20070101

REACTIONS (4)
  - TENDON RUPTURE [None]
  - TENDONITIS [None]
  - EPICONDYLITIS [None]
  - ROTATOR CUFF SYNDROME [None]
